FAERS Safety Report 6303645-7 (Version None)
Quarter: 2009Q3

REPORT INFORMATION
  Report Type: 
  Country: None (occurrence: None)
  Receive Date: 20090807
  Receipt Date: 20090807
  Transmission Date: 20100115
  Serious: Yes (Other)
  Sender: FDA-Public Use
  Company Number: None

PATIENT
  Age: 59 Year
  Sex: Female
  Weight: 63.5036 kg

DRUGS (1)
  1. ULTRAM ER [Suspect]
     Indication: OSTEOARTHRITIS
     Dosage: 1 PILL, EACH DAY
     Dates: start: 20090804, end: 20090805

REACTIONS (3)
  - DIZZINESS [None]
  - VOMITING [None]
  - WEIGHT DECREASED [None]
